FAERS Safety Report 20545383 (Version 1)
Quarter: 2022Q1

REPORT INFORMATION
  Report Type: Spontaneous
  Country: US (occurrence: US)
  Receive Date: 20220303
  Receipt Date: 20220303
  Transmission Date: 20220423
  Serious: No
  Sender: FDA-Public Use
  Company Number: US-ALLERGAN-2141869US

PATIENT
  Age: 70 Year
  Sex: Female

DRUGS (1)
  1. RESTASIS [Suspect]
     Active Substance: CYCLOSPORINE
     Indication: Product used for unknown indication
     Dosage: UNK
     Route: 047
     Dates: start: 2021

REACTIONS (7)
  - Bacterial infection [Recovered/Resolved]
  - Expired product administered [Unknown]
  - Eye irritation [Recovered/Resolved]
  - Suspected product contamination [Unknown]
  - Product quality issue [Unknown]
  - Eye pruritus [Not Recovered/Not Resolved]
  - Eye discharge [Unknown]

NARRATIVE: CASE EVENT DATE: 20211209
